FAERS Safety Report 22972936 (Version 2)
Quarter: 2023Q4

REPORT INFORMATION
  Report Type: Other
  Country: US (occurrence: None)
  Receive Date: 20230922
  Receipt Date: 20231002
  Transmission Date: 20240110
  Serious: Yes (Death, Hospitalization)
  Sender: FDA-Public Use
  Company Number: US-ROCHE-3425926

PATIENT
  Age: 63 Year
  Sex: Male

DRUGS (2)
  1. OCREVUS [Suspect]
     Active Substance: OCRELIZUMAB
     Indication: Primary progressive multiple sclerosis
     Dosage: LAST DATE OF TREATMENT: 31/AUG/2020, ANTICIPATED DATE OF TREATMENT: 03/MAR/2021
     Route: 042
  2. MAVENCLAD [Concomitant]
     Active Substance: CLADRIBINE
     Dosage: LAST DOSE WAS 04/JUN/2023

REACTIONS (2)
  - Urinary tract infection [Unknown]
  - Sepsis [Fatal]
